FAERS Safety Report 4828495-X (Version None)
Quarter: 2005Q4

REPORT INFORMATION
  Report Type: 
  Country: None (occurrence: None)
  Receive Date: 20051115
  Receipt Date: 20051103
  Transmission Date: 20060501
  Serious: Yes (Hospitalization)
  Sender: FDA-Public Use
  Company Number: PHNU2005DE03636

PATIENT
  Age: 16 Year
  Sex: Male
  Weight: 66 kg

DRUGS (2)
  1. LUDIOMIL [Suspect]
     Indication: DEPRESSION
     Dosage: 125 MG/DAY
     Route: 048
     Dates: start: 20050901
  2. CLARITHROMYCIN [Suspect]
     Indication: PHARYNGITIS
     Dosage: 500 MG/DAY
     Route: 048
     Dates: start: 20050928, end: 20051004

REACTIONS (4)
  - ANTIDEPRESSANT DRUG LEVEL INCREASED [None]
  - CONVULSION [None]
  - DRUG INTERACTION [None]
  - VISUAL DISTURBANCE [None]
